FAERS Safety Report 12667251 (Version 1)
Quarter: 2016Q3

REPORT INFORMATION
  Report Type: Spontaneous
  Country: US (occurrence: None)
  Receive Date: 20160818
  Receipt Date: 20160818
  Transmission Date: 20161109
  Serious: No
  Sender: FDA-Public Use
  Company Number: None

PATIENT
  Age: 49 Year
  Sex: Male

DRUGS (1)
  1. COUMADIN [Suspect]
     Active Substance: WARFARIN SODIUM
     Indication: ARTIFICIAL HEART IMPLANT
     Route: 048
     Dates: start: 20160621, end: 20160719

REACTIONS (2)
  - Product substitution issue [None]
  - International normalised ratio increased [None]

NARRATIVE: CASE EVENT DATE: 20160719
